FAERS Safety Report 7946194-2 (Version None)
Quarter: 2011Q4

REPORT INFORMATION
  Report Type: 
  Country: None (occurrence: None)
  Receive Date: 20111129
  Receipt Date: 20111122
  Transmission Date: 20120403
  Serious: Yes (Hospitalization)
  Sender: FDA-Public Use
  Company Number: US-UCBSA-046290

PATIENT
  Age: 24 Year
  Sex: Male

DRUGS (1)
  1. CIMZIA [Suspect]
     Indication: CROHN'S DISEASE
     Route: 058
     Dates: start: 20100624

REACTIONS (3)
  - ABDOMINAL PAIN [None]
  - APPENDICITIS NONINFECTIVE [None]
  - SMALL INTESTINAL OBSTRUCTION [None]
